FAERS Safety Report 5157582-4 (Version None)
Quarter: 2006Q4

REPORT INFORMATION
  Report Type: 
  Country: None (occurrence: None)
  Receive Date: 20061127
  Receipt Date: 20061121
  Transmission Date: 20070319
  Serious: Yes (Life-Threatening, Hospitalization)
  Sender: FDA-Public Use
  Company Number: DE-GLAXOSMITHKLINE-D0051529A

PATIENT
  Age: 41 Year
  Sex: Male
  Weight: 67.6 kg

DRUGS (4)
  1. RETROVIR [Suspect]
     Indication: HIV INFECTION
     Dosage: 250MG TWICE PER DAY
     Route: 048
     Dates: start: 19990719, end: 20060911
  2. EPIVIR [Concomitant]
     Indication: HIV INFECTION
     Dosage: 300MG PER DAY
     Route: 048
     Dates: start: 19990719
  3. SUSTIVA [Concomitant]
     Indication: HIV INFECTION
     Dosage: 600MG PER DAY
     Route: 048
     Dates: start: 19990719
  4. OSSOFORTIN FORTE [Concomitant]
     Indication: OSTEOPOROSIS
     Route: 065
     Dates: start: 20060101

REACTIONS (13)
  - AGGRESSION [None]
  - BLOOD LACTATE DEHYDROGENASE INCREASED [None]
  - COOMBS NEGATIVE HAEMOLYTIC ANAEMIA [None]
  - FAECES DISCOLOURED [None]
  - FATIGUE [None]
  - HAPTOGLOBIN DECREASED [None]
  - NAUSEA [None]
  - PERSONALITY CHANGE [None]
  - PYREXIA [None]
  - STAPHYLOCOCCAL INFECTION [None]
  - THROMBOCYTOPENIA [None]
  - THROMBOTIC THROMBOCYTOPENIC PURPURA [None]
  - VOMITING [None]
